FAERS Safety Report 14128030 (Version 1)
Quarter: 2017Q4

REPORT INFORMATION
  Report Type: Spontaneous
  Country: US (occurrence: None)
  Receive Date: 20171025
  Receipt Date: 20171025
  Transmission Date: 20180321
  Serious: No
  Sender: FDA-Public Use
  Company Number: None

PATIENT
  Age: 68 Year
  Sex: Female

DRUGS (1)
  1. TACROLIMUS CAP 0.5MG [Suspect]
     Active Substance: TACROLIMUS

REACTIONS (4)
  - Muscle atrophy [None]
  - Visual impairment [None]
  - Pain in extremity [None]
  - Heart rate irregular [None]

NARRATIVE: CASE EVENT DATE: 20171024
